FAERS Safety Report 6658194-3 (Version None)
Quarter: 2010Q1

REPORT INFORMATION
  Report Type: 
  Country: None (occurrence: None)
  Receive Date: 20100330
  Receipt Date: 20100324
  Transmission Date: 20100710
  Serious: Yes (Death)
  Sender: FDA-Public Use
  Company Number: B0644062A

PATIENT
  Sex: Female
  Weight: 58 kg

DRUGS (10)
  1. RELIFEX [Suspect]
     Dosage: 1G PER DAY
     Route: 048
  2. KETONAL [Suspect]
     Dosage: 100MG THREE TIMES PER DAY
     Route: 048
     Dates: end: 20100119
  3. DICLOREUM [Suspect]
     Dosage: 100MG PER DAY
     Route: 048
     Dates: end: 20100119
  4. ALENDRONIC ACID [Concomitant]
  5. PRESTARIUM [Concomitant]
  6. FUROSEMIDUM [Concomitant]
  7. RANIGAST [Concomitant]
  8. KALIPOZ [Concomitant]
  9. ALFADIOL [Concomitant]
  10. TRAMAL [Concomitant]

REACTIONS (1)
  - GASTROINTESTINAL HAEMORRHAGE [None]
